FAERS Safety Report 9809967 (Version 2)
Quarter: 2015Q1

REPORT INFORMATION
  Report Type: Spontaneous
  Country: US (occurrence: US)
  Receive Date: 20140110
  Receipt Date: 20150218
  Transmission Date: 20150721
  Serious: Yes (Other)
  Sender: FDA-Public Use
  Company Number: US-SANOFI-AVENTIS-2013SA068310

PATIENT

DRUGS (2)
  1. PLAVIX [Suspect]
     Active Substance: CLOPIDOGREL BISULFATE
     Indication: STENT PLACEMENT
     Route: 065
     Dates: start: 20040212, end: 20120721
  2. ASPIRIN. [Concomitant]
     Active Substance: ASPIRIN
     Dates: start: 20040212

REACTIONS (10)
  - Thrombotic thrombocytopenic purpura [Unknown]
  - Peripheral coldness [Unknown]
  - Cardiovascular disorder [Unknown]
  - Gait disturbance [Unknown]
  - Amnesia [Unknown]
  - Rectal haemorrhage [Unknown]
  - Hypoaesthesia [Unknown]
  - Gastrointestinal haemorrhage [Unknown]
  - Dysstasia [Unknown]
  - Chest pain [Unknown]

NARRATIVE: CASE EVENT DATE: 20120728
